FAERS Safety Report 4602705-6 (Version None)
Quarter: 2005Q1

REPORT INFORMATION
  Report Type: 
  Country: None (occurrence: None)
  Receive Date: 20050307
  Receipt Date: 20050303
  Transmission Date: 20050727
  Serious: Yes (Other)
  Sender: FDA-Public Use
  Company Number: 163-20785-05020473

PATIENT
  Age: 22 Year
  Sex: Female

DRUGS (2)
  1. THALOMID [Suspect]
     Indication: HEPATIC NEOPLASM MALIGNANT
     Dosage: 250 MG, DAILY, ORAL
     Route: 048
     Dates: start: 20050223, end: 20050301
  2. COMPAZINE [Suspect]
     Indication: NAUSEA

REACTIONS (3)
  - BLOOD HUMAN CHORIONIC GONADOTROPIN INCREASED [None]
  - NAUSEA [None]
  - PREGNANCY TEST URINE POSITIVE [None]
